FAERS Safety Report 5037512-6 (Version None)
Quarter: 2006Q2

REPORT INFORMATION
  Report Type: 
  Country: None (occurrence: None)
  Receive Date: 20060622
  Receipt Date: 20060314
  Transmission Date: 20061013
  Serious: Yes (Hospitalization)
  Sender: FDA-Public Use
  Company Number: 060031

PATIENT
  Age: 31 Year
  Sex: Male

DRUGS (2)
  1. GOLYTELY [Suspect]
     Indication: COLOSTOMY
     Dates: start: 20060101
  2. GOLYTELY [Suspect]
     Indication: OFF LABEL USE
     Dates: start: 20060101

REACTIONS (8)
  - ACUTE RESPIRATORY DISTRESS SYNDROME [None]
  - ASPIRATION TRACHEAL [None]
  - BLOOD PRESSURE DECREASED [None]
  - FEEDING TUBE COMPLICATION [None]
  - INCORRECT ROUTE OF DRUG ADMINISTRATION [None]
  - PARAPLEGIA [None]
  - PNEUMONIA [None]
  - UNEVALUABLE EVENT [None]
